FAERS Safety Report 9529453 (Version 1)
Quarter: 2013Q3

REPORT INFORMATION
  Report Type: Spontaneous
  Country: GB (occurrence: GB)
  Receive Date: 20130917
  Receipt Date: 20130917
  Transmission Date: 20140515
  Serious: Yes (Life-Threatening, Hospitalization)
  Sender: FDA-Public Use
  Company Number: GB-TEVA-431623ISR

PATIENT
  Age: 8 Decade
  Sex: Male

DRUGS (6)
  1. SIMVASTATIN [Suspect]
     Dosage: AT NIGHT
     Route: 065
  2. IMUVAC [Suspect]
     Indication: IMMUNISATION
     Dosage: SEASONAL FLU VACCINE 2009/2010 [DOSAGE NOT STATED]
  3. CETIRIZINE [Concomitant]
  4. DIGOXIN [Concomitant]
  5. FUROSEMIDE [Concomitant]
  6. WARFARIN [Concomitant]

REACTIONS (4)
  - Rhabdomyolysis [Recovered/Resolved]
  - Renal failure acute [Recovered/Resolved]
  - Myositis [Recovered/Resolved]
  - Multi-organ failure [Recovered/Resolved]
